FAERS Safety Report 4282866-1 (Version None)
Quarter: 2004Q1

REPORT INFORMATION
  Report Type: 
  Country: None (occurrence: None)
  Receive Date: 20040130
  Receipt Date: 20030724
  Transmission Date: 20041129
  Serious: No
  Sender: FDA-Public Use
  Company Number: US-BRISTOL-MYERS SQUIBB COMPANY-12334652

PATIENT
  Age: 32 Year
  Sex: Female

DRUGS (2)
  1. SERZONE [Suspect]
     Route: 048
     Dates: start: 20021201
  2. ZOLOFT [Concomitant]

REACTIONS (1)
  - LIVER FUNCTION TEST ABNORMAL [None]
